FAERS Safety Report 14479825 (Version 1)
Quarter: 2018Q1

REPORT INFORMATION
  Report Type: Spontaneous
  Country: FR (occurrence: FR)
  Receive Date: 20180202
  Receipt Date: 20180202
  Transmission Date: 20180509
  Serious: Yes (Hospitalization)
  Sender: FDA-Public Use
  Company Number: FR-BAXTER-2018BAX003826

PATIENT
  Age: 78 Year
  Sex: Male

DRUGS (1)
  1. METRONIDAZOLE BAXTER 0,5 POUR CENT, SOLUTION INJECTABLE EN POCHE [Suspect]
     Active Substance: METRONIDAZOLE
     Indication: BRAIN ABSCESS
     Route: 042
     Dates: start: 20171110, end: 20171215

REACTIONS (4)
  - Nuclear magnetic resonance imaging brain abnormal [Recovered/Resolved]
  - Dysarthria [Recovered/Resolved]
  - Ataxia [Recovered/Resolved]
  - Cerebellar ataxia [Recovered/Resolved]

NARRATIVE: CASE EVENT DATE: 20171213
